FAERS Safety Report 11744458 (Version 1)
Quarter: 2015Q4

REPORT INFORMATION
  Report Type: Spontaneous
  Country: US (occurrence: US)
  Receive Date: 20151116
  Receipt Date: 20151116
  Transmission Date: 20160304
  Serious: No
  Sender: FDA-Public Use
  Company Number: US-WATSON-2014-29163

PATIENT
  Age: 71 Year
  Sex: Female
  Weight: 61.68 kg

DRUGS (6)
  1. OMEPRAZOLE. [Concomitant]
     Active Substance: OMEPRAZOLE
     Indication: HELICOBACTER INFECTION
     Dosage: 20 MG, BID
     Route: 048
     Dates: end: 20140422
  2. MAGNESIUM [Concomitant]
     Active Substance: MAGNESIUM
     Indication: PRODUCT USED FOR UNKNOWN INDICATION
     Dosage: UNK
     Route: 048
  3. PYLERA [Suspect]
     Active Substance: BISMUTH SUBCITRATE POTASSIUM\METRONIDAZOLE\TETRACYCLINE HYDROCHLORIDE
     Indication: HELICOBACTER INFECTION
     Dosage: 12 DF, QD
     Route: 048
     Dates: start: 20140318
  4. PYLERA [Suspect]
     Active Substance: BISMUTH SUBCITRATE POTASSIUM\METRONIDAZOLE\TETRACYCLINE HYDROCHLORIDE
     Dosage: 9 DF, QD
     Route: 048
     Dates: start: 201403, end: 20140403
  5. CALCIUM [Concomitant]
     Active Substance: CALCIUM
     Indication: PRODUCT USED FOR UNKNOWN INDICATION
     Dosage: UNK
     Route: 048
  6. ZINC [Concomitant]
     Active Substance: ZINC\ZINC CHLORIDE
     Indication: PRODUCT USED FOR UNKNOWN INDICATION
     Dosage: UNK
     Route: 048

REACTIONS (13)
  - Chromaturia [Unknown]
  - Urinary incontinence [Unknown]
  - Dehydration [Unknown]
  - Arthritis [Not Recovered/Not Resolved]
  - Lower respiratory tract infection [Recovered/Resolved]
  - Nausea [Recovered/Resolved]
  - Inappropriate schedule of drug administration [Recovered/Resolved]
  - Asthenia [Unknown]
  - Muscular weakness [Unknown]
  - Malaise [Unknown]
  - Bedridden [Unknown]
  - Faeces discoloured [Recovering/Resolving]
  - Diarrhoea [Recovering/Resolving]

NARRATIVE: CASE EVENT DATE: 2014
